FAERS Safety Report 6126797-0 (Version None)
Quarter: 2009Q1

REPORT INFORMATION
  Report Type: 
  Country: None (occurrence: None)
  Receive Date: 20090320
  Receipt Date: 20090310
  Transmission Date: 20090719
  Serious: Yes (Death)
  Sender: FDA-Public Use
  Company Number: CN-PFIZER INC-2009173086

PATIENT

DRUGS (3)
  1. VFEND [Suspect]
     Indication: CANDIDIASIS
     Dosage: 420 MG, 2X/DAY
     Route: 042
     Dates: start: 20090101, end: 20090101
  2. MICAFUNGIN [Concomitant]
     Dosage: UNK
     Dates: start: 20090101, end: 20090101
  3. DIFLUCAN [Concomitant]
     Dosage: UNK
     Dates: start: 20090101, end: 20090101

REACTIONS (2)
  - MULTI-ORGAN FAILURE [None]
  - RESPIRATORY FAILURE [None]
